FAERS Safety Report 25048168 (Version 1)
Quarter: 2025Q1

REPORT INFORMATION
  Report Type: Report from Study
  Country: BR (occurrence: BR)
  Receive Date: 20250306
  Receipt Date: 20250306
  Transmission Date: 20250409
  Serious: Yes (Hospitalization)
  Sender: JOHNSON AND JOHNSON
  Company Number: BR-JNJFOC-20250301304

PATIENT
  Age: 41 Year
  Sex: Male
  Weight: 72 kg

DRUGS (2)
  1. INFLIXIMAB [Suspect]
     Active Substance: INFLIXIMAB
     Indication: Crohn^s disease
     Route: 041
  2. INFLIXIMAB [Suspect]
     Active Substance: INFLIXIMAB
     Dosage: 0, 2, 6 WEEKS AND AFTER 8 WEEKS
     Route: 041

REACTIONS (3)
  - Intestinal operation [Recovered/Resolved]
  - Dengue fever [Unknown]
  - Off label use [Unknown]

NARRATIVE: CASE EVENT DATE: 20240101
